FAERS Safety Report 16831791 (Version 1)
Quarter: 2019Q3

REPORT INFORMATION
  Report Type: Spontaneous
  Country: US (occurrence: US)
  Receive Date: 20190730
  Receipt Date: 20190730
  Transmission Date: 20191005
  Serious: Yes (Hospitalization)
  Sender: FDA-Public Use
  Company Number: None

PATIENT
  Age: 74 Year
  Sex: Female

DRUGS (1)
  1. TOBRAMYCIN 300 MG/5ML [Suspect]
     Active Substance: TOBRAMYCIN
     Indication: PNEUMONIA PSEUDOMONAL
     Dosage: ?          OTHER FREQUENCY:4 WK ON + 4WK OFF;OTHER ROUTE:NEB?
     Dates: start: 20190607

REACTIONS (1)
  - Hospitalisation [None]
